FAERS Safety Report 5799610-9 (Version None)
Quarter: 2008Q3

REPORT INFORMATION
  Report Type: 
  Country: None (occurrence: None)
  Receive Date: 20080703
  Receipt Date: 20080627
  Transmission Date: 20090109
  Serious: Yes (Hospitalization)
  Sender: FDA-Public Use
  Company Number: PHHY2008FR09110

PATIENT
  Sex: Female
  Weight: 10 kg

DRUGS (1)
  1. ZADITEN [Suspect]
     Indication: RHINITIS ALLERGIC
     Dosage: 1/2 DOSE, BID
     Route: 048

REACTIONS (2)
  - CONVULSION [None]
  - PYREXIA [None]
